FAERS Safety Report 8429167-5 (Version None)
Quarter: 2012Q2

REPORT INFORMATION
  Report Type: 
  Country: None (occurrence: None)
  Receive Date: 20120323
  Receipt Date: 20110722
  Transmission Date: 20120825
  Serious: Yes (Other)
  Sender: FDA-Public Use
  Company Number: 163-21880-11072809

PATIENT
  Age: 64 Year
  Sex: Female

DRUGS (2)
  1. REVLIMID [Suspect]
     Indication: MULTIPLE MYELOMA
     Dosage: 15 MG, DAILY FOR 21 DAYS ON THEN 7 DAYS OFF, PO ; 1 DAILY FOR 21 DAYS, PO
     Route: 048
     Dates: start: 20110617
  2. REVLIMID [Suspect]
     Indication: MULTIPLE MYELOMA
     Dosage: 15 MG, DAILY FOR 21 DAYS ON THEN 7 DAYS OFF, PO ; 1 DAILY FOR 21 DAYS, PO
     Route: 048
     Dates: start: 20091101

REACTIONS (2)
  - PRURITUS [None]
  - DEEP VEIN THROMBOSIS [None]
